FAERS Safety Report 5132029-2 (Version None)
Quarter: 2006Q4

REPORT INFORMATION
  Report Type: 
  Country: None (occurrence: None)
  Receive Date: 20061017
  Receipt Date: 20061004
  Transmission Date: 20070319
  Serious: Yes (Hospitalization, Disabling)
  Sender: FDA-Public Use
  Company Number: 2006096149

PATIENT
  Age: 46 Year
  Sex: Female
  Weight: 63.5036 kg

DRUGS (2)
  1. CELEBREX [Suspect]
     Indication: ARTHRITIS
     Dosage: 400 MG (200 MG, 2 IN 1 D)
     Dates: start: 19990101, end: 20060101
  2. CELEBREX [Suspect]
     Indication: SYSTEMIC LUPUS ERYTHEMATOSUS
     Dosage: 400 MG (200 MG, 2 IN 1 D)
     Dates: start: 19990101, end: 20060101

REACTIONS (3)
  - CARDIOVASCULAR DISORDER [None]
  - CEREBROVASCULAR ACCIDENT [None]
  - POLYTRAUMATISM [None]
